FAERS Safety Report 6402057-5 (Version None)
Quarter: 2009Q4

REPORT INFORMATION
  Report Type: 
  Country: None (occurrence: None)
  Receive Date: 20091015
  Receipt Date: 20091013
  Transmission Date: 20100525
  Serious: Yes (Other)
  Sender: FDA-Public Use
  Company Number: FR-BRISTOL-MYERS SQUIBB COMPANY-14749949

PATIENT
  Age: 49 Year
  Sex: Male
  Weight: 54 kg

DRUGS (2)
  1. ORENCIA [Suspect]
     Indication: RHEUMATOID ARTHRITIS
     Dosage: FIFTH INFUSION OF ORENCIA ON 25-JUL-2009, 6TH ON 8SEP09
     Dates: start: 20090429
  2. CORTANCYL [Concomitant]

REACTIONS (1)
  - THROMBOCYTOPENIA [None]
